FAERS Safety Report 10057711 (Version 1)
Quarter: 2014Q2

REPORT INFORMATION
  Report Type: Spontaneous
  Country: US (occurrence: US)
  Receive Date: 20140404
  Receipt Date: 20140404
  Transmission Date: 20141212
  Serious: Yes (Hospitalization, Other)
  Sender: FDA-Public Use
  Company Number: US-BIOGENIDEC-2014BI028457

PATIENT
  Age: 67 Year
  Sex: Female

DRUGS (1)
  1. TECFIDERA [Suspect]
     Indication: MULTIPLE SCLEROSIS
     Route: 048
     Dates: start: 20131216

REACTIONS (5)
  - Haematochezia [Recovered/Resolved]
  - Haemorrhage [Recovered/Resolved]
  - Dehydration [Recovered/Resolved]
  - Aphagia [Recovered/Resolved]
  - Obstruction [Unknown]
